FAERS Safety Report 8180831-5 (Version None)
Quarter: 2012Q1

REPORT INFORMATION
  Report Type: 
  Country: None (occurrence: None)
  Receive Date: 20120302
  Receipt Date: 20120224
  Transmission Date: 20120608
  Serious: Yes (Other)
  Sender: FDA-Public Use
  Company Number: US-JNJFOC-20120213907

PATIENT
  Sex: Female
  Weight: 69.85 kg

DRUGS (9)
  1. ACETAMINOPHEN [Interacting]
     Route: 065
  2. ACETAMINOPHEN [Interacting]
     Indication: PAIN
     Route: 065
  3. LYRICA [Suspect]
     Indication: ARTHRITIS
     Route: 048
  4. LYRICA [Suspect]
     Route: 048
  5. LYRICA [Suspect]
     Route: 048
     Dates: start: 20120101
  6. LYRICA [Suspect]
     Indication: FIBROMYALGIA
     Route: 048
     Dates: start: 20120101
  7. COUMADIN [Interacting]
     Indication: PRODUCT USED FOR UNKNOWN INDICATION
     Route: 065
  8. GABAPENTIN [Suspect]
     Indication: MYALGIA
     Route: 048
  9. GABAPENTIN [Suspect]
     Indication: NEURALGIA
     Route: 048

REACTIONS (4)
  - EPISTAXIS [None]
  - PROTHROMBIN TIME PROLONGED [None]
  - DRUG INEFFECTIVE [None]
  - DRUG INTERACTION [None]
